FAERS Safety Report 9503548 (Version 4)
Quarter: 2014Q1

REPORT INFORMATION
  Report Type: Spontaneous
  Country: US (occurrence: US)
  Receive Date: 20130906
  Receipt Date: 20140228
  Transmission Date: 20141002
  Serious: Yes (Disabling)
  Sender: FDA-Public Use
  Company Number: US-PFIZER INC-2013257194

PATIENT
  Age: 60 Year
  Sex: Female
  Weight: 120 kg

DRUGS (22)
  1. LYRICA [Suspect]
     Indication: SCIATIC NERVE NEUROPATHY
     Dosage: 75 MG, 3X/DAY
     Route: 048
     Dates: start: 201208
  2. LYRICA [Suspect]
     Indication: INTERVERTEBRAL DISC DEGENERATION
     Dosage: 75 MG, 3X/DAY
     Route: 048
     Dates: start: 20120927
  3. LYRICA [Suspect]
     Indication: SCIATICA
     Dosage: UNK
  4. ACETAMINOPHEN [Concomitant]
     Indication: OSTEOARTHRITIS
     Dosage: 500 MG, AS NEEDED (EVERY 8 HRS AS NEEDED)
     Dates: start: 20090203
  5. RAMIPRIL [Concomitant]
     Indication: HYPERTENSION
     Dosage: 10 MG, 2X/DAY
     Route: 048
     Dates: start: 20070119
  6. RAMIPRIL [Concomitant]
     Indication: ESSENTIAL HYPERTENSION
  7. AMLODIPINE BESILATE [Concomitant]
     Indication: HYPERTENSION
     Dosage: 10 MG, 1X/DAY
     Route: 048
     Dates: start: 20090401
  8. AMLODIPINE BESILATE [Concomitant]
     Indication: ESSENTIAL HYPERTENSION
  9. NASONEX [Concomitant]
     Indication: ASTHMA
     Dosage: UNK
  10. PROVENTIL HFA [Concomitant]
     Indication: ASTHMA
     Dosage: (INHALE 1-2 PUFFS EVERY 4-6 HOURS AS NEEDED)
     Dates: start: 20090203
  11. FUROSEMIDE [Concomitant]
     Indication: FLUID RETENTION
     Dosage: 40 MG, 2X/DAY
     Route: 048
     Dates: start: 20050802
  12. FUROSEMIDE [Concomitant]
     Indication: ESSENTIAL HYPERTENSION
  13. POTASSIUM CHLORIDE [Concomitant]
     Indication: FLUID RETENTION
     Dosage: 10 MEQ, 1X/DAY
     Route: 048
     Dates: start: 20120817
  14. POTASSIUM CHLORIDE [Concomitant]
     Indication: PROPHYLAXIS
  15. NAPROXEN [Concomitant]
     Indication: ARTHRITIS
     Dosage: 500 MG, 2X/DAY
  16. NAPROXEN [Concomitant]
     Indication: SCIATICA
     Dosage: 375 MG, 2X/DAY
     Route: 048
     Dates: start: 20120816
  17. PRAVASTATIN SODIUM [Concomitant]
     Indication: BLOOD CHOLESTEROL ABNORMAL
     Dosage: 10 MG, 1X/DAY (A BEDTIME)
     Route: 048
     Dates: start: 20051011
  18. PRAVASTATIN SODIUM [Concomitant]
     Indication: HYPERLIPIDAEMIA
  19. NEXIUM [Concomitant]
     Indication: GASTRIC DISORDER
     Dosage: 40 MG, 1X/DAY
     Route: 048
     Dates: start: 20060615
  20. NEXIUM [Concomitant]
     Indication: GASTROOESOPHAGEAL REFLUX DISEASE
  21. TRAMADOL HYDROCHLORIDE [Concomitant]
     Indication: PAIN
     Dosage: 50 MG, 3X/DAY
     Route: 048
     Dates: start: 20120816
  22. TRAMADOL HYDROCHLORIDE [Concomitant]
     Indication: SCIATICA

REACTIONS (1)
  - Back disorder [Unknown]
